FAERS Safety Report 19193366 (Version 4)
Quarter: 2021Q2

REPORT INFORMATION
  Report Type: Spontaneous
  Country: BR (occurrence: BR)
  Receive Date: 20210428
  Receipt Date: 20210602
  Transmission Date: 20210717
  Serious: Yes (Other)
  Sender: FDA-Public Use
  Company Number: BR-ABBVIE-21P-020-3881593-00

PATIENT
  Sex: Male
  Weight: 105 kg

DRUGS (5)
  1. GARDENAL [Concomitant]
     Active Substance: PHENOBARBITAL
     Indication: SEIZURE
     Dosage: ADMINISTERED IN THE MORNING AND AT NIGHT; DAILY DOSE: 4 TABLETS
     Route: 048
  2. LEVOID [Concomitant]
     Active Substance: LEVOTHYROXINE
     Indication: HYPOTHYROIDISM
     Dosage: ADMINISTERED DURING FASTING; DAILY DOSE: 1 TABLET
     Route: 048
  3. DIVALCON ER [Suspect]
     Active Substance: DIVALPROEX SODIUM
     Indication: SEIZURE
     Dosage: DAILY DOSE: 6 TABLET; ADMINISTERED IN THE MORNING, DURING THE AFTERNOON AND AT NIGHT
     Route: 048
     Dates: start: 20210417, end: 202104
  4. KEPPRA [Concomitant]
     Active Substance: LEVETIRACETAM
     Indication: SEIZURE
     Dosage: 30 ML; ADMINISTERED 10 ML IN THE MORNING, 10 ML IN AFTERNOON AND 10 ML AT NIGHT;
     Route: 048
  5. LACOSAMIDE. [Concomitant]
     Active Substance: LACOSAMIDE
     Indication: SEIZURE
     Dosage: ADMINISTERED IN THE MORNING AND AT NIGHT; DAILY DOSE: 2 TABLETS
     Route: 048
     Dates: start: 202010

REACTIONS (6)
  - Malabsorption [Unknown]
  - Seizure [Recovered/Resolved]
  - Product residue present [Unknown]
  - Inappropriate schedule of product administration [Unknown]
  - Off label use [Unknown]
  - Product quality issue [Unknown]

NARRATIVE: CASE EVENT DATE: 202104
